FAERS Safety Report 5724277-5 (Version None)
Quarter: 2008Q2

REPORT INFORMATION
  Report Type: 
  Country: None (occurrence: None)
  Receive Date: 20080424
  Receipt Date: 20070416
  Transmission Date: 20081010
  Serious: Yes (Hospitalization)
  Sender: FDA-Public Use
  Company Number: TEST00207000367

PATIENT
  Sex: Male
  Weight: 136 kg

DRUGS (2)
  1. ANDROGEL [Suspect]
     Indication: HYPOGONADISM
     Dosage: 1 DOSAGE FORM QD TRANSCUTANEOUS DAILY DOSE: 1 DOSAGE FORM
     Dates: start: 20040101, end: 20040601
  2. AVAPRO [Concomitant]

REACTIONS (1)
  - OBSTRUCTIVE UROPATHY [None]
